FAERS Safety Report 6223867-3 (Version None)
Quarter: 2009Q2

REPORT INFORMATION
  Report Type: 
  Country: None (occurrence: None)
  Receive Date: 20090611
  Receipt Date: 20090304
  Transmission Date: 20091009
  Serious: No
  Sender: FDA-Public Use
  Company Number: US-ABBOTT-09P-163-0560454-00

PATIENT
  Sex: Male
  Weight: 104.42 kg

DRUGS (3)
  1. HUMIRA [Suspect]
     Indication: CROHN'S DISEASE
     Dosage: DAY 1
     Dates: start: 20090109, end: 20090109
  2. HUMIRA [Suspect]
     Dosage: ONCE
     Dates: start: 20090123, end: 20090123
  3. HUMIRA [Suspect]
     Dates: start: 20090206

REACTIONS (3)
  - CONJUNCTIVITIS [None]
  - OROPHARYNGEAL PAIN [None]
  - SINUS DISORDER [None]
